FAERS Safety Report 9373134 (Version 1)
Quarter: 2013Q2

REPORT INFORMATION
  Report Type: Spontaneous
  Country: US (occurrence: US)
  Receive Date: 20130627
  Receipt Date: 20130627
  Transmission Date: 20140414
  Serious: No
  Sender: FDA-Public Use
  Company Number: US-TEVA-415553USA

PATIENT
  Sex: Female

DRUGS (3)
  1. AZILECT [Suspect]
     Indication: PARKINSON^S DISEASE
     Route: 048
     Dates: start: 201304
  2. SERTRALINE [Concomitant]
     Indication: DEPRESSION
     Dosage: DAILY
     Route: 048
     Dates: start: 2013
  3. SERTRALINE [Concomitant]
     Route: 048
     Dates: start: 201304, end: 2013

REACTIONS (1)
  - Somnolence [Not Recovered/Not Resolved]
